FAERS Safety Report 26066126 (Version 1)
Quarter: 2025Q4

REPORT INFORMATION
  Report Type: Spontaneous
  Country: EU (occurrence: EU)
  Receive Date: 20251119
  Receipt Date: 20251119
  Transmission Date: 20260119
  Serious: Yes (Other)
  Sender: TEVA
  Company Number: EU-TEVA-VS-3304679

PATIENT
  Age: 34 Year
  Sex: Female

DRUGS (4)
  1. COPAXONE [Suspect]
     Active Substance: GLATIRAMER ACETATE
     Indication: Multiple sclerosis
     Dosage: DOSAGE: 40 MG/ML
     Route: 065
     Dates: start: 20161007, end: 20240507
  2. COPAXONE [Suspect]
     Active Substance: GLATIRAMER ACETATE
     Dosage: DOSAGE: 40 MG/ML RESTARTED AFTER PAUSE OF APPLICATION (REGIMEN2)
     Route: 065
     Dates: start: 20250130
  3. COPAXONE [Suspect]
     Active Substance: GLATIRAMER ACETATE
     Dosage: DOSAGE: 40 MG/ML
     Route: 065
     Dates: start: 20250130
  4. CHOLECALCIFEROL [Concomitant]
     Active Substance: CHOLECALCIFEROL
     Indication: Product used for unknown indication
     Dosage: 20000 IE, 1XWEEKLY

REACTIONS (21)
  - Loss of consciousness [Recovered/Resolved]
  - Dyspnoea [Recovered/Resolved]
  - Seizure [Recovered/Resolved]
  - Feeling hot [Recovered/Resolved]
  - Chest discomfort [Recovering/Resolving]
  - Headache [Recovering/Resolving]
  - Hyperhidrosis [Recovered/Resolved]
  - Fear of death [Recovering/Resolving]
  - Myalgia [Recovered/Resolved]
  - Dizziness [Recovering/Resolving]
  - Tinnitus [Recovered/Resolved]
  - Injection site irritation [Unknown]
  - Chills [Recovered/Resolved]
  - Maternal exposure during breast feeding [Unknown]
  - Eye pain [Recovering/Resolving]
  - Flushing [Unknown]
  - Live birth [Unknown]
  - Chest pain [Recovering/Resolving]
  - Maternal exposure during pregnancy [Unknown]
  - Injection site haematoma [Unknown]
  - Dyspnoea [Recovering/Resolving]

NARRATIVE: CASE EVENT DATE: 20240101
